FAERS Safety Report 18632575 (Version 3)
Quarter: 2022Q3

REPORT INFORMATION
  Report Type: Spontaneous
  Country: CZ (occurrence: CZ)
  Receive Date: 20201218
  Receipt Date: 20220921
  Transmission Date: 20221027
  Serious: Yes (Death, Hospitalization, Other)
  Sender: FDA-Public Use
  Company Number: CZ-SA-2020SA346141

PATIENT
  Age: 76 Year
  Sex: Male

DRUGS (22)
  1. KEVZARA [Suspect]
     Active Substance: SARILUMAB
     Indication: Rheumatoid arthritis
     Dosage: UNK
     Dates: end: 20200625
  2. ENOXAPARIN SODIUM [Concomitant]
     Active Substance: ENOXAPARIN SODIUM
  3. OMEPRAZOLE [Concomitant]
     Active Substance: OMEPRAZOLE
     Dosage: 1 DF, QD (BEFORE MEALS)
  4. PREDNISONE [Concomitant]
     Active Substance: PREDNISONE
     Dosage: 1 DF
  5. PERINDOPRIL ARGININE [Concomitant]
     Active Substance: PERINDOPRIL ARGININE
     Dosage: 1 DF
  6. RILMENIDINE [Concomitant]
     Active Substance: RILMENIDINE
     Dosage: 1 DF
  7. CETIRIZINE HYDROCHLORIDE [Concomitant]
     Active Substance: CETIRIZINE HYDROCHLORIDE
     Dosage: 1 DF
  8. GABAPENTIN [Concomitant]
     Active Substance: GABAPENTIN
     Dosage: 1 DF
  9. CALCIUM\CHOLECALCIFEROL [Concomitant]
     Active Substance: CALCIUM\CHOLECALCIFEROL
     Dosage: 1 DF
  10. TAMSULOSIN [Concomitant]
     Active Substance: TAMSULOSIN
     Dosage: 1 DF
  11. TRAZODONE HYDROCHLORIDE [Concomitant]
     Active Substance: TRAZODONE HYDROCHLORIDE
     Dosage: 3 DF, QD
  12. FENTANYL [Concomitant]
     Active Substance: FENTANYL
     Dosage: 25 UG, QH
  13. TRAMADOL [Concomitant]
     Active Substance: TRAMADOL
     Dosage: 1150 DF, TID
  14. MELOXICAM [Concomitant]
     Active Substance: MELOXICAM
     Dosage: 1 DF, QD
  15. INADINE [Concomitant]
     Indication: Fingerprint loss
  16. BETALOC SA [Concomitant]
     Dosage: 2 DF
  17. TAMSULOSIN HYDROCHLORIDE [Concomitant]
     Active Substance: TAMSULOSIN HYDROCHLORIDE
  18. AMLODIPINE BESYLATE\PERINDOPRIL ARGININE [Concomitant]
     Active Substance: AMLODIPINE BESYLATE\PERINDOPRIL ARGININE
     Dosage: 1 DF
  19. AMLODIPINE BESYLATE [Concomitant]
     Active Substance: AMLODIPINE BESYLATE
     Dosage: 1 DF
  20. TANTUM [BENZYDAMINE HYDROCHLORIDE] [Concomitant]
  21. TRAMADOL [Concomitant]
     Active Substance: TRAMADOL
     Dosage: 1 DF, QD
  22. SPIRONOLACTONE [Concomitant]
     Active Substance: SPIRONOLACTONE
     Dosage: 1 DF

REACTIONS (1)
  - Chronic kidney disease [Fatal]

NARRATIVE: CASE EVENT DATE: 20200709
